FAERS Safety Report 5275704-1 (Version None)
Quarter: 2007Q1

REPORT INFORMATION
  Report Type: 
  Country: None (occurrence: None)
  Receive Date: 20061213
  Receipt Date: 20040325
  Transmission Date: 20070707
  Serious: No
  Sender: FDA-Public Use
  Company Number: 2004UW05911

PATIENT
  Age: 40 Year
  Sex: Female
  Weight: 79.3795 kg

DRUGS (4)
  1. SEROQUEL [Suspect]
     Indication: SLEEP DISORDER
     Dosage: 800 MG DAILY PO
     Route: 048
     Dates: start: 20010301, end: 20031001
  2. EFFEXOR XR [Concomitant]
  3. TRILEPTAL [Concomitant]
  4. REMERON [Concomitant]

REACTIONS (1)
  - TARDIVE DYSKINESIA [None]
